FAERS Safety Report 6841305-4 (Version None)
Quarter: 2010Q3

REPORT INFORMATION
  Report Type: 
  Country: None (occurrence: None)
  Receive Date: 20100714
  Receipt Date: 20070829
  Transmission Date: 20110219
  Serious: Yes (Other)
  Sender: FDA-Public Use
  Company Number: US-PFIZER INC-2007051657

PATIENT
  Sex: Male
  Weight: 76.2 kg

DRUGS (2)
  1. CHANTIX [Suspect]
     Dates: start: 20070420
  2. AFRIN [Suspect]

REACTIONS (8)
  - AMNESIA [None]
  - ANXIETY [None]
  - BLOOD GLUCOSE INCREASED [None]
  - BLOOD PROLACTIN INCREASED [None]
  - CONFUSIONAL STATE [None]
  - CONVULSION [None]
  - HEADACHE [None]
  - TONGUE INJURY [None]
